FAERS Safety Report 6732145-5 (Version None)
Quarter: 2010Q2

REPORT INFORMATION
  Report Type: 
  Country: None (occurrence: None)
  Receive Date: 20100519
  Receipt Date: 20100505
  Transmission Date: 20101027
  Serious: Yes (Hospitalization)
  Sender: FDA-Public Use
  Company Number: US-SANOFI-AVENTIS-2010SA026516

PATIENT
  Age: 89 Year
  Sex: Male

DRUGS (13)
  1. PLAVIX [Suspect]
     Route: 048
     Dates: start: 20100201
  2. PLAVIX [Suspect]
     Route: 048
     Dates: start: 20100201
  3. PLAVIX [Suspect]
     Route: 048
     Dates: start: 20100501
  4. PLAVIX [Suspect]
     Route: 048
     Dates: start: 20100501
  5. ASPIRIN [Concomitant]
     Dates: start: 20100501
  6. ASPIRIN [Concomitant]
     Dates: start: 20100501
  7. IRON [Concomitant]
  8. MULTI-VITAMINS [Concomitant]
  9. FISH OIL [Concomitant]
  10. PROTEIN SUPPLEMENTS [Concomitant]
  11. LIPITOR [Concomitant]
     Dates: start: 20100201
  12. ZESTRIL [Concomitant]
     Dates: start: 20100201
  13. TAMSULOSIN HYDROCHLORIDE [Concomitant]
     Dates: start: 20100201

REACTIONS (6)
  - ANAEMIA [None]
  - FATIGUE [None]
  - GAIT DISTURBANCE [None]
  - HAEMATOCRIT DECREASED [None]
  - HAEMOGLOBIN DECREASED [None]
  - UNDERDOSE [None]
